FAERS Safety Report 4342280-7 (Version None)
Quarter: 2004Q2

REPORT INFORMATION
  Report Type: 
  Country: None (occurrence: None)
  Receive Date: 20040415
  Receipt Date: 20040401
  Transmission Date: 20050107
  Serious: Yes (Hospitalization)
  Sender: FDA-Public Use
  Company Number: 2004-DE-01814SI

PATIENT
  Age: 70 Year
  Sex: Female

DRUGS (11)
  1. MEXILETINE (MEXILETINE HYDROCHLORIDE) (TA) [Suspect]
     Indication: NEUROPATHIC PAIN
     Dosage: 600 MG (200 MG), PO
     Route: 048
     Dates: end: 20040317
  2. STILNOX (TAP) [Concomitant]
  3. LUDIOMIL (DRA) [Concomitant]
  4. TRANXILIUM (TAP) [Concomitant]
  5. BUSPAR [Concomitant]
  6. SEROQUEL [Concomitant]
  7. AGOPTON [Concomitant]
  8. ATROVENT [Concomitant]
  9. VENTOLIN [Concomitant]
  10. CALCIMAGON (CALCIUM CARBONATE) [Concomitant]
  11. MYCOSTATIN [Concomitant]

REACTIONS (6)
  - AKATHISIA [None]
  - ASTERIXIS [None]
  - DEPRESSED LEVEL OF CONSCIOUSNESS [None]
  - ENCEPHALOPATHY [None]
  - SPEECH DISORDER [None]
  - VISUAL DISTURBANCE [None]
